FAERS Safety Report 8262823-0 (Version None)
Quarter: 2012Q2

REPORT INFORMATION
  Report Type: 
  Country: None (occurrence: None)
  Receive Date: 20120405
  Receipt Date: 20120327
  Transmission Date: 20120825
  Serious: Yes (Other)
  Sender: FDA-Public Use
  Company Number: GB-ASTRAZENECA-2011SE29864

PATIENT
  Age: 56 Year
  Sex: Female

DRUGS (10)
  1. SEROQUEL [Suspect]
     Route: 048
  2. LISINOPRIL [Concomitant]
  3. ALBUTEROL [Concomitant]
  4. SEROQUEL [Suspect]
     Indication: BIPOLAR DISORDER
     Route: 048
     Dates: start: 19990101
  5. SEROQUEL [Suspect]
     Route: 048
  6. ADVAIR DISKUS 100/50 [Concomitant]
  7. CELEXA [Concomitant]
  8. MAXAIR [Concomitant]
  9. SEROQUEL [Suspect]
     Indication: SLEEP DISORDER
     Route: 048
     Dates: start: 19990101
  10. MAXALT [Concomitant]

REACTIONS (5)
  - INTENTIONAL DRUG MISUSE [None]
  - LEIOMYOSARCOMA [None]
  - VAGINAL CANCER [None]
  - OFF LABEL USE [None]
  - INSOMNIA [None]
